FAERS Safety Report 14954386 (Version 2)
Quarter: 2018Q3

REPORT INFORMATION
  Report Type: Spontaneous
  Country: US (occurrence: US)
  Receive Date: 20180530
  Receipt Date: 20180818
  Transmission Date: 20181010
  Serious: No
  Sender: FDA-Public Use
  Company Number: US-JNJFOC-20180518263

PATIENT
  Age: 34 Year
  Sex: Male
  Weight: 88 kg

DRUGS (4)
  1. WHEY PROTEIN [Concomitant]
     Active Substance: WHEY
     Indication: NUTRITIONAL SUPPLEMENTATION
     Dosage: 1 TSP 1X PER DAY
     Route: 065
  2. AMINO ACIDS NOS [Concomitant]
     Active Substance: AMINO ACIDS
     Indication: PRODUCT USED FOR UNKNOWN INDICATION
     Route: 065
  3. MENS ROGAINE EXTRA STRENGTH [Suspect]
     Active Substance: MINOXIDIL
     Route: 061
  4. MENS ROGAINE EXTRA STRENGTH [Suspect]
     Active Substance: MINOXIDIL
     Indication: ALOPECIA
     Route: 061
     Dates: start: 20180509, end: 20180511

REACTIONS (5)
  - Vertigo [Recovered/Resolved]
  - Product use in unapproved indication [Unknown]
  - Hypoaesthesia [Not Recovered/Not Resolved]
  - Feeling abnormal [Unknown]
  - Heart rate increased [Recovered/Resolved]

NARRATIVE: CASE EVENT DATE: 201805
